FAERS Safety Report 20890713 (Version 4)
Quarter: 2023Q1

REPORT INFORMATION
  Report Type: Report from Study
  Country: US (occurrence: US)
  Receive Date: 20220530
  Receipt Date: 20230317
  Transmission Date: 20230418
  Serious: Yes (Hospitalization, Other)
  Sender: FDA-Public Use
  Company Number: US-ABBVIE-22K-163-4412331-00

PATIENT
  Sex: Male

DRUGS (3)
  1. IMBRUVICA [Suspect]
     Active Substance: IBRUTINIB
     Indication: Chronic lymphocytic leukaemia
     Dosage: 1ST REGIMEN
     Route: 048
     Dates: start: 20190912
  2. IMBRUVICA [Suspect]
     Active Substance: IBRUTINIB
     Indication: Chronic lymphocytic leukaemia
     Dosage: 2ND REGIMEN
     Route: 048
     Dates: end: 202205
  3. IMBRUVICA [Suspect]
     Active Substance: IBRUTINIB
     Indication: Chronic lymphocytic leukaemia
     Dosage: 3RD REGIMEN
     Route: 048
     Dates: start: 2022

REACTIONS (5)
  - Coronary artery occlusion [Unknown]
  - Arthralgia [Unknown]
  - Pain in extremity [Unknown]
  - Platelet count decreased [Unknown]
  - Chest pain [Unknown]
